FAERS Safety Report 8832980 (Version 3)
Quarter: 2012Q4

REPORT INFORMATION
  Report Type: 
  Country: US (occurrence: US)
  Receive Date: 20121010
  Receipt Date: 20121107
  Transmission Date: 20130627
  Serious: No
  Sender: FDA-Public Use
  Company Number: US-009507513-1209USA003956

PATIENT
  Sex: Male

DRUGS (1)
  1. PEG-INTRON [Suspect]
     Indication: HEPATITIS C
     Dosage: UNK
     Dates: start: 20120809

REACTIONS (16)
  - Injection site discolouration [Unknown]
  - Injection site swelling [Unknown]
  - Injection site pruritus [Unknown]
  - Application site rash [Unknown]
  - Fatigue [Unknown]
  - Disturbance in attention [Unknown]
  - Feeling abnormal [Unknown]
  - White blood cell count decreased [Unknown]
  - Platelet count decreased [Unknown]
  - Feeling abnormal [Unknown]
  - Pyrexia [Unknown]
  - Chills [Unknown]
  - Pollakiuria [Unknown]
  - Insomnia [Unknown]
  - Dehydration [Unknown]
  - Thirst [Unknown]
